FAERS Safety Report 8926539 (Version 1)
Quarter: 2012Q4

REPORT INFORMATION
  Report Type: 
  Country: US (occurrence: US)
  Receive Date: 20121127
  Receipt Date: 20121127
  Transmission Date: 20130627
  Serious: Yes (Other)
  Sender: FDA-Public Use
  Company Number: US-BAYER-2012-121716

PATIENT
  Age: 61 Year
  Sex: Female

DRUGS (1)
  1. GADAVIST [Suspect]
     Indication: COMPUTERISED TOMOGRAM HEAD
     Dosage: 100 mg, ONCE
     Dates: start: 20121113, end: 20121113

REACTIONS (5)
  - Sensorimotor disorder [Recovered/Resolved]
  - Hypoaesthesia [Recovered/Resolved]
  - Hot flush [Recovered/Resolved]
  - Pruritus [Recovered/Resolved]
  - Burning sensation [Recovered/Resolved]
